FAERS Safety Report 9230676 (Version 2)
Quarter: 2014Q2

REPORT INFORMATION
  Report Type: Spontaneous
  Country: US (occurrence: US)
  Receive Date: 20130415
  Receipt Date: 20140410
  Transmission Date: 20141212
  Serious: Yes (Life-Threatening, Disabling)
  Sender: FDA-Public Use
  Company Number: US-BAYER-2013-045758

PATIENT
  Age: 50 Year
  Sex: Female
  Weight: 63.95 kg

DRUGS (12)
  1. OCELLA [Suspect]
  2. YASMIN [Suspect]
  3. YAZ [Suspect]
  4. BEYAZ [Suspect]
  5. GIANVI [Suspect]
  6. SAFYRAL [Suspect]
  7. ZARAH [Suspect]
  8. CITALOPRAM [Concomitant]
  9. BUSPIRONE [Concomitant]
     Dosage: 30 MG, UNK
     Dates: start: 20120816
  10. ALPRAZOLAM [Concomitant]
     Dosage: 0.5 MG, UNK
     Dates: start: 20120816
  11. AMBIEN [Concomitant]
     Dosage: 10 MG, UNK
     Dates: start: 20120716
  12. CIPROFLOXACIN [Concomitant]
     Dosage: 500 MG, UNK
     Dates: start: 20120629

REACTIONS (9)
  - Pulmonary embolism [None]
  - Deep vein thrombosis [None]
  - Injury [None]
  - Pain [None]
  - General physical health deterioration [None]
  - Anxiety [None]
  - Anhedonia [None]
  - Emotional distress [None]
  - Pain [None]
